FAERS Safety Report 5630874-8 (Version None)
Quarter: 2008Q1

REPORT INFORMATION
  Report Type: 
  Country: None (occurrence: None)
  Receive Date: 20080131
  Receipt Date: 20071022
  Transmission Date: 20080703
  Serious: No
  Sender: FDA-Public Use
  Company Number: 163-21880-07101283

PATIENT
  Age: 67 Year
  Sex: Male

DRUGS (2)
  1. REVLIMID [Suspect]
     Indication: MULTIPLE MYELOMA
     Dosage: 15 MG, ONE CAPSULE EVERY M,W,F FOR WEEKS 1-3, ORAL ; 10 MG, DAILY X 21 DAYS, ORAL
     Route: 048
     Dates: start: 20070921, end: 20070101
  2. REVLIMID [Suspect]
     Indication: MULTIPLE MYELOMA
     Dosage: 15 MG, ONE CAPSULE EVERY M,W,F FOR WEEKS 1-3, ORAL ; 10 MG, DAILY X 21 DAYS, ORAL
     Route: 048
     Dates: start: 20071024

REACTIONS (2)
  - MUSCULOSKELETAL STIFFNESS [None]
  - OEDEMA PERIPHERAL [None]
